FAERS Safety Report 25764447 (Version 1)
Quarter: 2025Q3

REPORT INFORMATION
  Report Type: Spontaneous
  Country: US (occurrence: US)
  Receive Date: 20250905
  Receipt Date: 20250905
  Transmission Date: 20251021
  Serious: No
  Sender: DOMPE FARMACEUTICI
  Company Number: US-FARMAPROD-202501-0083

PATIENT
  Sex: Female
  Weight: 92.49 kg

DRUGS (15)
  1. OXERVATE [Suspect]
     Active Substance: CENEGERMIN-BKBJ
     Indication: Neurotrophic keratopathy
     Route: 047
     Dates: start: 20241213
  2. MAGNESIUM [Concomitant]
     Active Substance: MAGNESIUM
  3. ZINC [Concomitant]
     Active Substance: ZINC
  4. FISH OIL [Concomitant]
     Active Substance: FISH OIL
  5. ATORVASTATIN CALCIUM [Concomitant]
     Active Substance: ATORVASTATIN CALCIUM
  6. IVIZIA [Concomitant]
     Active Substance: POVIDONE
  7. CHLORTHALIDONE [Concomitant]
     Active Substance: CHLORTHALIDONE
  8. NEBIVOLOL [Concomitant]
     Active Substance: NEBIVOLOL
  9. XIIDRA [Concomitant]
     Active Substance: LIFITEGRAST
  10. TRADJENTA [Concomitant]
     Active Substance: LINAGLIPTIN
  11. DAPAGLIFLOZIN [Concomitant]
     Active Substance: DAPAGLIFLOZIN
  12. NYSTATIN [Concomitant]
     Active Substance: NYSTATIN
  13. AMLODIPINE BESYLATE [Concomitant]
     Active Substance: AMLODIPINE BESYLATE
  14. GLIPIZIDE [Concomitant]
     Active Substance: GLIPIZIDE
  15. LUMIGAN [Concomitant]
     Active Substance: BIMATOPROST

REACTIONS (3)
  - Product dose omission issue [Unknown]
  - Eye pain [Unknown]
  - Intentional product misuse [Unknown]
